FAERS Safety Report 9065938 (Version 1)
Quarter: 2013Q1

REPORT INFORMATION
  Report Type: Spontaneous
  Country: US (occurrence: US)
  Receive Date: 20130214
  Receipt Date: 20130214
  Transmission Date: 20140127
  Serious: No
  Sender: FDA-Public Use
  Company Number: US-009507513-1301USA008741

PATIENT
  Sex: 0

DRUGS (2)
  1. FOLLISTIM AQ CARTRIDGE [Suspect]
  2. PUREGON PEN [Suspect]

REACTIONS (2)
  - Medical device complication [Unknown]
  - No adverse event [Unknown]
